FAERS Safety Report 14512139 (Version 3)
Quarter: 2019Q2

REPORT INFORMATION
  Report Type: Spontaneous
  Country: CA (occurrence: CA)
  Receive Date: 20180209
  Receipt Date: 20190424
  Transmission Date: 20190711
  Serious: Yes (Death, Other)
  Sender: FDA-Public Use
  Company Number: CA-PFIZER INC-2018052572

PATIENT
  Age: 41 Year
  Sex: Female

DRUGS (3)
  1. ASPIRIN. [Suspect]
     Active Substance: ASPIRIN
     Indication: ANTIPLATELET THERAPY
     Dosage: 81 MG, DAILY (FOR AT LEAST FOUR DAYS BEFORE STENTING)
  2. HEPARIN SODIUM. [Suspect]
     Active Substance: HEPARIN SODIUM
     Dosage: UNK (BOLUS, INTRA-PROCEDURAL ANTICOAGULOTHERAPY)
  3. CLOPIDOGREL [Suspect]
     Active Substance: CLOPIDOGREL BISULFATE
     Dosage: 75 MG, DAILY (FOR AT LEAST FOUR DAYS BEFORE STENTING)

REACTIONS (2)
  - Cerebellar haemorrhage [Fatal]
  - Brain death [Fatal]
